FAERS Safety Report 17545320 (Version 1)
Quarter: 2020Q1

REPORT INFORMATION
  Report Type: Spontaneous
  Country: US (occurrence: US)
  Receive Date: 20200315
  Receipt Date: 20200315
  Transmission Date: 20200409
  Serious: No
  Sender: FDA-Public Use
  Company Number: None

PATIENT
  Age: 27 Year
  Sex: Male
  Weight: 63 kg

DRUGS (5)
  1. COUGH DROPS [Concomitant]
  2. TEA [Concomitant]
     Active Substance: TEA LEAF
  3. HYDROCORTISONE 2.5% RECTAL CREAM [Concomitant]
  4. ALBUTEROL SULFATE HFA INHALATION AEROSOL [Suspect]
     Active Substance: ALBUTEROL SULFATE
     Indication: BRONCHITIS CHRONIC
     Dosage: ?          QUANTITY:18 N/A;?
     Route: 055
     Dates: start: 20200304, end: 20200315
  5. VITAMIN D3 [Concomitant]
     Active Substance: CHOLECALCIFEROL

REACTIONS (3)
  - Inflammation [None]
  - Rhinorrhoea [None]
  - Bronchitis chronic [None]

NARRATIVE: CASE EVENT DATE: 20200313
